FAERS Safety Report 8514508-0 (Version None)
Quarter: 2012Q3

REPORT INFORMATION
  Report Type: 
  Country: None (occurrence: None)
  Receive Date: 20120717
  Receipt Date: 20120711
  Transmission Date: 20120928
  Serious: Yes (Hospitalization)
  Sender: FDA-Public Use
  Company Number: FR-PFIZER INC-2011245661

PATIENT
  Age: 61 Year
  Sex: Female

DRUGS (6)
  1. NEXIUM [Suspect]
     Dosage: UNK
     Route: 041
     Dates: start: 20110703, end: 20110808
  2. FLUCONAZOLE [Suspect]
     Dosage: 2 MG/ML
     Route: 041
     Dates: start: 20110718, end: 20110729
  3. CIPROFLOXACIN HYDROCHLORIDE [Suspect]
     Dosage: UNK
     Dates: start: 20110718, end: 20110729
  4. CLAFORAN [Suspect]
     Dosage: UNK
     Route: 041
     Dates: start: 20110703, end: 20110729
  5. HEXABRIX [Suspect]
     Dosage: 1 DF, SINGLE
     Route: 042
     Dates: start: 20110713, end: 20110713
  6. VANCOMYCIN HYCHLORIDE [Suspect]
     Dosage: UNK
     Route: 041
     Dates: start: 20110703, end: 20110729

REACTIONS (1)
  - DRUG RASH WITH EOSINOPHILIA AND SYSTEMIC SYMPTOMS [None]
